FAERS Safety Report 10389031 (Version 1)
Quarter: 2014Q1

REPORT INFORMATION
  Report Type: Spontaneous
  Country: US (occurrence: None)
  Receive Date: 20140306
  Receipt Date: 20140306
  Transmission Date: 20141002
  Serious: Yes (Hospitalization)
  Sender: FDA-Public Use
  Company Number: 163-21880-13102338

PATIENT
  Age: 74 Year
  Sex: Male
  Weight: 70.76 kg

DRUGS (8)
  1. REVLIMID (LENALIDOMIDE) (25 MILLIGRAM, CAPSULES) [Suspect]
     Indication: PLASMA CELL MYELOMA
     Route: 048
     Dates: start: 20130927, end: 20131007
  2. KEPPRA (LEVETIRACETAM) [Concomitant]
  3. BENICAR (OLMESARTAN MEDOXOMIL) [Concomitant]
  4. ONDANSETRON [Concomitant]
  5. VALTREX (VALACICLOVIR HYDROCHLORIDE) [Concomitant]
  6. PROCHLORPERAZINE [Concomitant]
  7. TAMSULOSIN [Concomitant]
  8. PERCOCET (OXYCOCET) [Concomitant]

REACTIONS (2)
  - Cerebrovascular accident [None]
  - Cerebral haemorrhage [None]
